FAERS Safety Report 4376149-9 (Version None)
Quarter: 2004Q2

REPORT INFORMATION
  Report Type: 
  Country: None (occurrence: None)
  Receive Date: 20040607
  Receipt Date: 20040524
  Transmission Date: 20050107
  Serious: Yes (Hospitalization)
  Sender: FDA-Public Use
  Company Number: 2004024870

PATIENT
  Age: 3 Year
  Sex: Male
  Weight: 20.1 kg

DRUGS (7)
  1. ZITHROMAX [Suspect]
     Indication: ILL-DEFINED DISORDER
     Dates: end: 20040229
  2. CYPROHEPATADINE HYDROCHLORIDE (CYPROHEPATADINE HYDROCHLORIDE) [Concomitant]
  3. HYDROXYZINE HCL [Concomitant]
  4. DEXTROMETHORPHAN HYDROBROMIDE (DEXTROMETHORPHAN HYDROBROMIDE) [Concomitant]
  5. ACETYLCYSTEINE [Concomitant]
  6. PROCATEROL HYDROCHLORIDE (PROCATEROL HYDROCHLORIDE) [Concomitant]
  7. LYSOZYME HYDROCHLORIDE (LYSOZYME HYDROCHLORIDE) [Concomitant]

REACTIONS (12)
  - ASPARTATE AMINOTRANSFERASE INCREASED [None]
  - BLOOD ALKALINE PHOSPHATASE INCREASED [None]
  - BLOOD LACTATE DEHYDROGENASE INCREASED [None]
  - BLOOD UREA DECREASED [None]
  - C-REACTIVE PROTEIN INCREASED [None]
  - GLUCOSE URINE PRESENT [None]
  - HAEMATOCRIT DECREASED [None]
  - HAEMATURIA [None]
  - HAEMOGLOBIN DECREASED [None]
  - PROTEIN URINE PRESENT [None]
  - URINE ANALYSIS ABNORMAL [None]
  - WHITE BLOOD CELL COUNT DECREASED [None]
